FAERS Safety Report 5495867-2 (Version None)
Quarter: 2007Q4

REPORT INFORMATION
  Report Type: 
  Country: None (occurrence: None)
  Receive Date: 20071025
  Receipt Date: 20061103
  Transmission Date: 20080405
  Serious: No
  Sender: FDA-Public Use
  Company Number: A0626181A

PATIENT
  Age: 46 Year
  Sex: Female

DRUGS (4)
  1. ADVAIR DISKUS 100/50 [Suspect]
     Indication: DRUG USE FOR UNKNOWN INDICATION
     Dosage: 1PUFF TWICE PER DAY
     Route: 055
     Dates: start: 20020101
  2. ZYRTEC-D [Concomitant]
  3. SUDAFED 12 HOUR [Concomitant]
  4. MUCINEX [Concomitant]

REACTIONS (3)
  - DIZZINESS [None]
  - DRY SKIN [None]
  - PRURITUS [None]
